FAERS Safety Report 4793753-4 (Version None)
Quarter: 2005Q4

REPORT INFORMATION
  Report Type: 
  Country: None (occurrence: None)
  Receive Date: 20051011
  Receipt Date: 20050930
  Transmission Date: 20060501
  Serious: Yes (Hospitalization)
  Sender: FDA-Public Use
  Company Number: FR-JNJFOC-20050902662

PATIENT
  Age: 70 Year
  Sex: Male
  Weight: 66 kg

DRUGS (5)
  1. REMICADE [Suspect]
     Dosage: 24TH INFUSION
     Route: 042
  2. REMICADE [Suspect]
     Dosage: 23 INFUSIONS.
     Route: 042
  3. REMICADE [Suspect]
     Indication: RHEUMATOID ARTHRITIS
     Route: 042
  4. METHOTREXATE [Suspect]
     Indication: RHEUMATOID ARTHRITIS
     Route: 048
  5. HYDROCORTISONE [Concomitant]
     Route: 065

REACTIONS (4)
  - LEGIONELLA INFECTION [None]
  - LOBAR PNEUMONIA [None]
  - LUNG INFECTION [None]
  - SEPSIS [None]
